FAERS Safety Report 19620007 (Version 1)
Quarter: 2021Q3

REPORT INFORMATION
  Report Type: Spontaneous
  Country: US (occurrence: US)
  Receive Date: 20210728
  Receipt Date: 20210728
  Transmission Date: 20211014
  Serious: No
  Sender: FDA-Public Use
  Company Number: US-ROCHE-2738937

PATIENT
  Age: 61 Year
  Sex: Female

DRUGS (2)
  1. ZOFRAN [Concomitant]
     Active Substance: ONDANSETRON HYDROCHLORIDE
     Indication: NAUSEA
  2. XELODA [Suspect]
     Active Substance: CAPECITABINE
     Indication: PRODUCT USED FOR UNKNOWN INDICATION
     Route: 048
     Dates: start: 202009

REACTIONS (10)
  - Gastrooesophageal reflux disease [Unknown]
  - Skin exfoliation [Not Recovered/Not Resolved]
  - Weight increased [Unknown]
  - Paraesthesia [Unknown]
  - Nausea [Unknown]
  - Haematochezia [Recovered/Resolved]
  - Hot flush [Unknown]
  - Pruritus [Unknown]
  - Cough [Recovered/Resolved]
  - Neuropathy peripheral [Not Recovered/Not Resolved]

NARRATIVE: CASE EVENT DATE: 20200921
